FAERS Safety Report 15920834 (Version 1)
Quarter: 2019Q1

REPORT INFORMATION
  Report Type: Spontaneous
  Country: HU (occurrence: HU)
  Receive Date: 20190205
  Receipt Date: 20190205
  Transmission Date: 20190417
  Serious: Yes (Life-Threatening)
  Sender: FDA-Public Use
  Company Number: HU-MYLANLABS-2019M1009500

PATIENT
  Age: 73 Year
  Sex: Female

DRUGS (1)
  1. DICLOFENAC [Suspect]
     Active Substance: DICLOFENAC
     Indication: FOOT DEFORMITY
     Dosage: UNK
     Route: 062

REACTIONS (2)
  - Respiratory failure [Recovered/Resolved]
  - Anaphylactic shock [Recovered/Resolved]
